FAERS Safety Report 19656624 (Version 1)
Quarter: 2021Q3

REPORT INFORMATION
  Report Type: Spontaneous
  Country: US (occurrence: US)
  Receive Date: 20210804
  Receipt Date: 20210804
  Transmission Date: 20211014
  Serious: No
  Sender: FDA-Public Use
  Company Number: None

PATIENT
  Age: 82 Year
  Sex: Male
  Weight: 95.4 kg

DRUGS (22)
  1. TRESIBA 100UNIT/ML [Concomitant]
  2. CLOPIDOGREL [Concomitant]
     Active Substance: CLOPIDOGREL BISULFATE
  3. LEVOTHYROXINE 25MCG [Concomitant]
     Active Substance: LEVOTHYROXINE
  4. CENTRUM SILVER [Concomitant]
     Active Substance: MINERALS\VITAMINS
  5. METFORMIN [Concomitant]
     Active Substance: METFORMIN HYDROCHLORIDE
  6. FERROUS SULFATE 325MG [Concomitant]
     Active Substance: FERROUS SULFATE
  7. METOPROLOL SUCCINATE ER 50MG [Concomitant]
  8. ASPIRIN 81MG [Concomitant]
     Active Substance: ASPIRIN
  9. CATHFLO ACTIVASE 2MG [Concomitant]
  10. BUPRENORPHINE 8MG [Concomitant]
     Active Substance: BUPRENORPHINE
  11. ATORVASTATIN 20MG [Concomitant]
     Active Substance: ATORVASTATIN
  12. HEPARIN SODIUM FLUSH [Concomitant]
  13. SENOKOT [Concomitant]
     Active Substance: SENNOSIDES
  14. POTASSIUM CHLORIDE. [Concomitant]
     Active Substance: POTASSIUM CHLORIDE
  15. GLIMEPIRIDE 2MG [Concomitant]
     Active Substance: GLIMEPIRIDE
  16. NOVOLOG [Concomitant]
     Active Substance: INSULIN ASPART
  17. AMLODIPINE [Concomitant]
     Active Substance: AMLODIPINE BESYLATE
  18. CAPECITABINE. [Suspect]
     Active Substance: CAPECITABINE
     Indication: GASTRIC CANCER
     Dosage: ?          OTHER FREQUENCY:BID X 14/21 DAYS;?
     Route: 048
     Dates: start: 20210407, end: 20210804
  19. TAMSULOSIN 0.4MG [Concomitant]
     Active Substance: TAMSULOSIN
  20. LOSARTAN 100MG [Concomitant]
     Active Substance: LOSARTAN
  21. FINASTERIDE 5MG [Concomitant]
     Active Substance: FINASTERIDE
  22. MIRALAX [Concomitant]
     Active Substance: POLYETHYLENE GLYCOL 3350

REACTIONS (1)
  - Disease progression [None]

NARRATIVE: CASE EVENT DATE: 20210804
